FAERS Safety Report 9620792 (Version 3)
Quarter: 2013Q4

REPORT INFORMATION
  Report Type: Report from Study
  Country: NL (occurrence: NL)
  Receive Date: 20131015
  Receipt Date: 20131127
  Transmission Date: 20140711
  Serious: Yes (Hospitalization)
  Sender: FDA-Public Use
  Company Number: NL-AMGEN-NLDCT2013071933

PATIENT
  Age: 40 Year
  Sex: Male
  Weight: 93.8 kg

DRUGS (8)
  1. ETANERCEPT [Suspect]
     Indication: PRODUCT USED FOR UNKNOWN INDICATION
     Dosage: 75 MG, QWK
     Route: 058
     Dates: start: 20130117, end: 20130910
  2. ETANERCEPT [Suspect]
     Dosage: UNK
     Route: 065
     Dates: start: 20130926
  3. SINGULAIR [Concomitant]
     Indication: ASTHMA
     Dosage: UNK
  4. XYZAL [Concomitant]
     Dosage: UNK
  5. DERMOVATE [Concomitant]
     Indication: PSORIASIS
     Dosage: UNK
  6. UREUMZALF [Concomitant]
     Indication: PSORIASIS
     Dosage: UNK
  7. FLUTIFORM [Concomitant]
     Dosage: UNK
  8. FLUTICASONE W/FORMOTEROL [Concomitant]
     Dosage: UNK

REACTIONS (1)
  - Erysipelas [Recovered/Resolved]
